FAERS Safety Report 15046133 (Version 1)
Quarter: 2018Q2

REPORT INFORMATION
  Report Type: Spontaneous
  Country: US (occurrence: US)
  Receive Date: 20180621
  Receipt Date: 20180621
  Transmission Date: 20180711
  Serious: Yes (Other)
  Sender: FDA-Public Use
  Company Number: US-TEVA-2018-US-910378

PATIENT
  Age: 80 Year
  Sex: Female

DRUGS (3)
  1. CALCITRIOL. [Suspect]
     Active Substance: CALCITRIOL
     Indication: HYPOPARATHYROIDISM
     Route: 065
  2. CALCIUM [Suspect]
     Active Substance: CALCIUM
     Indication: HYPOPARATHYROIDISM
     Route: 065
  3. VITAMIN D [Suspect]
     Active Substance: CHOLECALCIFEROL
     Indication: HYPOPARATHYROIDISM
     Route: 065

REACTIONS (2)
  - Acute kidney injury [Recovered/Resolved]
  - Milk-alkali syndrome [Recovered/Resolved]
